FAERS Safety Report 25277902 (Version 2)
Quarter: 2025Q2

REPORT INFORMATION
  Report Type: Spontaneous
  Country: IT (occurrence: IT)
  Receive Date: 20250507
  Receipt Date: 20250516
  Transmission Date: 20250717
  Serious: Yes (Death, Hospitalization)
  Sender: NOVARTIS
  Company Number: IT-002147023-NVSC2025IT073420

PATIENT
  Age: 19 Year
  Sex: Female

DRUGS (1)
  1. EVEROLIMUS [Suspect]
     Active Substance: EVEROLIMUS
     Indication: Pinealoblastoma
     Route: 048

REACTIONS (3)
  - Pinealoblastoma [Fatal]
  - Malignant neoplasm progression [Fatal]
  - Drug ineffective for unapproved indication [Fatal]
